FAERS Safety Report 16428998 (Version 3)
Quarter: 2023Q1

REPORT INFORMATION
  Report Type: Report from Study
  Country: BR (occurrence: BR)
  Receive Date: 20190613
  Receipt Date: 20230304
  Transmission Date: 20230418
  Serious: Yes (Hospitalization, Other)
  Sender: FDA-Public Use
  Company Number: BR-ABBVIE-19K-020-2816983-00

PATIENT
  Age: 49 Year
  Sex: Female
  Weight: 63 kg

DRUGS (6)
  1. HUMIRA [Suspect]
     Active Substance: ADALIMUMAB
     Indication: Crohn^s disease
     Dosage: LOADING DOSE - WEEK 0
     Route: 058
  2. HUMIRA [Suspect]
     Active Substance: ADALIMUMAB
     Indication: Colitis
     Dosage: LOADING DOSE - WEEK 02
     Route: 058
  3. HUMIRA [Suspect]
     Active Substance: ADALIMUMAB
     Route: 058
     Dates: end: 201901
  4. HUMIRA [Suspect]
     Active Substance: ADALIMUMAB
     Route: 058
  5. HUMIRA [Suspect]
     Active Substance: ADALIMUMAB
     Route: 058
     Dates: start: 2019
  6. HUMIRA [Suspect]
     Active Substance: ADALIMUMAB
     Route: 058

REACTIONS (7)
  - Gastrointestinal inflammation [Recovering/Resolving]
  - Intestinal haemorrhage [Recovering/Resolving]
  - Anaemia [Recovering/Resolving]
  - Abdominal discomfort [Unknown]
  - Abdominal distension [Recovering/Resolving]
  - Injection site pain [Unknown]
  - Crohn^s disease [Unknown]

NARRATIVE: CASE EVENT DATE: 20190101
